FAERS Safety Report 4407169-3 (Version None)
Quarter: 2004Q3

REPORT INFORMATION
  Report Type: 
  Country: None (occurrence: None)
  Receive Date: 20040721
  Receipt Date: 20040707
  Transmission Date: 20050211
  Serious: Yes (Death, Other)
  Sender: FDA-Public Use
  Company Number: USA040669466

PATIENT
  Age: 84 Year
  Sex: Female

DRUGS (13)
  1. ZYPREXA [Suspect]
     Indication: BIPOLAR DISORDER
     Dosage: 2.5 MG/1 DAY
     Dates: start: 20031201
  2. ACCUPRIL [Concomitant]
  3. NORVASC [Concomitant]
  4. DIAZIDE (GLICLAZIDE) [Concomitant]
  5. PROTONIX [Concomitant]
  6. ASPIRIN [Concomitant]
  7. XANAX (ALPRAZOLAM DUM) [Concomitant]
  8. VIOXX [Concomitant]
  9. TRAZADONE (TRAZODONE) [Concomitant]
  10. PREDNISONE [Concomitant]
  11. GUANFACINE HCL [Concomitant]
  12. SYNTHROID [Concomitant]
  13. BUMEX [Concomitant]

REACTIONS (4)
  - AGITATION [None]
  - CARDIAC ARREST [None]
  - ELECTROCARDIOGRAM ABNORMAL [None]
  - RENAL FAILURE ACUTE [None]
